FAERS Safety Report 8881084 (Version 1)
Quarter: 2012Q4

REPORT INFORMATION
  Report Type: 
  Country: US (occurrence: US)
  Receive Date: 20121031
  Receipt Date: 20121031
  Transmission Date: 20130627
  Serious: Yes (Disabling)
  Sender: FDA-Public Use
  Company Number: US-ROCHE-1142122

PATIENT
  Age: 66 Year
  Sex: Female
  Weight: 42.68 kg

DRUGS (4)
  1. RITUXAN [Suspect]
     Indication: RHEUMATOID ARTHRITIS
     Route: 042
     Dates: start: 20090513
  2. MOTRIN [Concomitant]
     Indication: RHEUMATOID ARTHRITIS
     Route: 048
  3. NORCO [Concomitant]
     Indication: RHEUMATOID ARTHRITIS
     Dosage: 10/325mg
     Route: 048
  4. NORCO [Concomitant]
     Indication: PAIN

REACTIONS (2)
  - Mycobacterium avium complex infection [Recovering/Resolving]
  - Weight decreased [Unknown]
